FAERS Safety Report 12634374 (Version 1)
Quarter: 2016Q3

REPORT INFORMATION
  Report Type: Spontaneous
  Country: US (occurrence: None)
  Receive Date: 20160808
  Receipt Date: 20160808
  Transmission Date: 20161109
  Serious: No
  Sender: FDA-Public Use
  Company Number: None

PATIENT
  Age: 65 Year
  Sex: Female

DRUGS (1)
  1. IBRANCE [Suspect]
     Active Substance: PALBOCICLIB
     Indication: BREAST CANCER FEMALE
     Dosage: 1 CAPSULE DAILY FOR 21 CONSECUTIVE BY MOUTH
     Route: 048
     Dates: start: 20160415

REACTIONS (4)
  - Headache [None]
  - Nausea [None]
  - Insomnia [None]
  - Sinus disorder [None]

NARRATIVE: CASE EVENT DATE: 20160620
